FAERS Safety Report 16741008 (Version 1)
Quarter: 2019Q4

REPORT INFORMATION
  Report Type: Spontaneous
  Country: US (occurrence: US)
  Receive Date: 20190826
  Receipt Date: 20190826
  Transmission Date: 20200122
  Serious: Yes (Other)
  Sender: FDA-Public Use
  Company Number: None

PATIENT
  Age: 37 Year
  Sex: Female
  Weight: 75.6 kg

DRUGS (1)
  1. MONTELUKAST (GENERIC FOR SINGULAIR) [Suspect]
     Active Substance: MONTELUKAST SODIUM
     Indication: MULTIPLE ALLERGIES
     Dosage: ?          QUANTITY:14 TABLET(S);?
     Route: 048
     Dates: start: 20190819, end: 20190821

REACTIONS (3)
  - Gait disturbance [None]
  - Sleep disorder [None]
  - Pelvic pain [None]

NARRATIVE: CASE EVENT DATE: 20190820
